FAERS Safety Report 4355636-3 (Version None)
Quarter: 2004Q2

REPORT INFORMATION
  Report Type: 
  Country: None (occurrence: None)
  Receive Date: 20040505
  Receipt Date: 20040423
  Transmission Date: 20050107
  Serious: Yes (Hospitalization)
  Sender: FDA-Public Use
  Company Number: US-JNJFOC-20040405323

PATIENT
  Age: 33 Month
  Sex: Male
  Weight: 12.3 kg

DRUGS (8)
  1. REMICADE [Suspect]
     Indication: CROHN'S DISEASE
     Dosage: 75 MG, INTRAVENOUS
     Route: 042
     Dates: start: 20040419, end: 20040419
  2. IMURAN [Concomitant]
  3. TYLENOL [Concomitant]
  4. BENADRYL [Concomitant]
  5. PRELONE (PREDNISOLONE) [Concomitant]
  6. PREVACID [Concomitant]
  7. NIFEREX (POLYSACCHARIDE-IRON COMPLEX) [Concomitant]
  8. AZULFIDINE [Concomitant]

REACTIONS (5)
  - CEREBRAL INFARCTION [None]
  - CONVULSION [None]
  - HEADACHE [None]
  - INTRACRANIAL VENOUS SINUS THROMBOSIS [None]
  - VOMITING [None]
